FAERS Safety Report 12983831 (Version 1)
Quarter: 2016Q4

REPORT INFORMATION
  Report Type: Spontaneous
  Country: US (occurrence: US)
  Receive Date: 20161129
  Receipt Date: 20161129
  Transmission Date: 20170207
  Serious: No
  Sender: FDA-Public Use
  Company Number: US-ENDO PHARMACEUTICALS INC.-2015-004596

PATIENT
  Age: 69 Year
  Sex: Male
  Weight: 76.73 kg

DRUGS (2)
  1. TESTIM [Suspect]
     Active Substance: TESTOSTERONE
     Indication: BLOOD TESTOSTERONE DECREASED
     Route: 062
     Dates: start: 20151110, end: 20151119
  2. ENDOCET [Concomitant]
     Active Substance: ACETAMINOPHEN\OXYCODONE HYDROCHLORIDE
     Indication: SPINAL FRACTURE

REACTIONS (9)
  - Depression [Not Recovered/Not Resolved]
  - Rash [Recovered/Resolved]
  - Weight decreased [Not Recovered/Not Resolved]
  - Anger [Not Recovered/Not Resolved]
  - Decreased appetite [Not Recovered/Not Resolved]
  - Rash generalised [Recovered/Resolved]
  - Peripheral coldness [Recovered/Resolved]
  - Aggression [Not Recovered/Not Resolved]
  - Depressed mood [Not Recovered/Not Resolved]

NARRATIVE: CASE EVENT DATE: 20151111
